FAERS Safety Report 17919851 (Version 2)
Quarter: 2020Q3

REPORT INFORMATION
  Report Type: Spontaneous
  Country: US (occurrence: US)
  Receive Date: 20200619
  Receipt Date: 20200720
  Transmission Date: 20201103
  Serious: Yes (Other)
  Sender: FDA-Public Use
  Company Number: US-MACLEODS PHARMACEUTICALS US LTD-MAC2020026836

PATIENT

DRUGS (3)
  1. ASPIRIN. [Suspect]
     Active Substance: ASPIRIN
     Indication: PRODUCT USED FOR UNKNOWN INDICATION
     Dosage: UNK
     Route: 065
  2. LIDOCAINE. [Suspect]
     Active Substance: LIDOCAINE
     Indication: LOCAL ANAESTHESIA
     Dosage: UNK
     Route: 065
     Dates: start: 2003
  3. IBUPROFEN. [Suspect]
     Active Substance: IBUPROFEN
     Indication: PRODUCT USED FOR UNKNOWN INDICATION
     Dosage: UNK
     Route: 065

REACTIONS (11)
  - Speech disorder [Unknown]
  - Moaning [Unknown]
  - Drug hypersensitivity [Unknown]
  - Palpitations [Unknown]
  - Screaming [Unknown]
  - Swelling [Unknown]
  - Angioedema [Unknown]
  - Seizure [Unknown]
  - Muscle rigidity [Unknown]
  - Mental status changes [Unknown]
  - Tachycardia [Unknown]

NARRATIVE: CASE EVENT DATE: 2003
